FAERS Safety Report 5737890-6 (Version None)
Quarter: 2008Q2

REPORT INFORMATION
  Report Type: 
  Country: None (occurrence: None)
  Receive Date: 20080509
  Receipt Date: 20080425
  Transmission Date: 20081010
  Serious: Yes (Other)
  Sender: FDA-Public Use
  Company Number: 2008000608

PATIENT
  Age: 50 Year
  Sex: Male

DRUGS (3)
  1. TARCEVA [Suspect]
     Indication: NON-SMALL CELL LUNG CANCER
     Dosage: (150 MG,QD),ORAL,  (100 MG,QD),0RAL
     Route: 048
     Dates: start: 20080214, end: 20080220
  2. TARCEVA [Suspect]
     Indication: NON-SMALL CELL LUNG CANCER
     Dosage: (150 MG,QD),ORAL,  (100 MG,QD),0RAL
     Route: 048
     Dates: start: 20080303, end: 20080301
  3. TARCEVA [Suspect]
     Indication: NON-SMALL CELL LUNG CANCER
     Dosage: (150 MG,QD),ORAL,  (100 MG,QD),0RAL
     Route: 048
     Dates: start: 20080221, end: 20080302

REACTIONS (5)
  - HAEMOPTYSIS [None]
  - INCORRECT DOSE ADMINISTERED [None]
  - METASTASES TO CENTRAL NERVOUS SYSTEM [None]
  - METASTASES TO LIVER [None]
  - RASH [None]
